FAERS Safety Report 5405801-9 (Version None)
Quarter: 2007Q3

REPORT INFORMATION
  Report Type: 
  Country: None (occurrence: None)
  Receive Date: 20070806
  Receipt Date: 20070731
  Transmission Date: 20080115
  Serious: Yes (Other)
  Sender: FDA-Public Use
  Company Number: US-BRISTOL-MYERS SQUIBB COMPANY-13862347

PATIENT
  Age: 79 Year
  Sex: Male

DRUGS (13)
  1. ABATACEPT [Suspect]
     Indication: RHEUMATOID ARTHRITIS
     Route: 042
     Dates: start: 20030515, end: 20070730
  2. ALLEGRA [Concomitant]
     Indication: SEASONAL ALLERGY
     Route: 048
     Dates: start: 20051205
  3. CEPHALEXIN [Concomitant]
     Indication: SKIN INFECTION
     Route: 048
     Dates: start: 20070724, end: 20070730
  4. MULTI-VITAMIN [Concomitant]
     Indication: MEDICAL DIET
     Route: 048
     Dates: start: 20070707
  5. FOLIC ACID [Concomitant]
     Indication: RHEUMATOID ARTHRITIS
     Route: 048
     Dates: end: 20070730
  6. ULTRAM [Concomitant]
     Indication: RHEUMATOID ARTHRITIS
     Route: 048
     Dates: start: 20060417
  7. SODIUM SULAMYD [Concomitant]
     Indication: HORDEOLUM
     Route: 047
     Dates: start: 20061011
  8. VASOTEC [Concomitant]
     Indication: HYPERTENSION
     Route: 048
     Dates: start: 20070320
  9. LEUCOVORIN CALCIUM [Concomitant]
     Indication: MEDICAL DIET
     Route: 048
     Dates: start: 20030403
  10. KEFLEX [Concomitant]
     Indication: SKIN INFECTION
     Route: 048
     Dates: start: 20070724, end: 20070730
  11. TYLENOL (CAPLET) [Concomitant]
     Indication: RHEUMATOID ARTHRITIS
     Route: 048
  12. ATENOLOL [Concomitant]
     Indication: HYPERTENSION
     Route: 048
     Dates: start: 20020927
  13. METHOTREXATE [Concomitant]
     Indication: RHEUMATOID ARTHRITIS
     Route: 048
     Dates: start: 20060718, end: 20060730

REACTIONS (3)
  - BASAL CELL CARCINOMA [None]
  - SKIN CANCER [None]
  - SQUAMOUS CELL CARCINOMA [None]
